FAERS Safety Report 10281746 (Version 7)
Quarter: 2015Q2

REPORT INFORMATION
  Report Type: Spontaneous
  Country: US (occurrence: US)
  Receive Date: 20140707
  Receipt Date: 20150515
  Transmission Date: 20150821
  Serious: Yes (Hospitalization, Disabling, Other)
  Sender: FDA-Public Use
  Company Number: US-009507513-1406USA014023

PATIENT
  Sex: Female
  Weight: 61.2 kg

DRUGS (7)
  1. ALENDRONATE SODIUM. [Suspect]
     Active Substance: ALENDRONATE SODIUM
     Dosage: 70 MG, UNK
     Dates: start: 20081126, end: 20110628
  2. FOSAMAX [Suspect]
     Active Substance: ALENDRONATE SODIUM
     Indication: OSTEOPOROSIS
  3. ALENDRONATE SODIUM. [Suspect]
     Active Substance: ALENDRONATE SODIUM
     Indication: OSTEOPENIA
     Dosage: 70 MG, QW
     Route: 048
     Dates: start: 20110831, end: 20121212
  4. ALENDRONATE SODIUM. [Suspect]
     Active Substance: ALENDRONATE SODIUM
     Indication: OSTEOPOROSIS
     Dosage: 70 MG, QW
     Route: 048
     Dates: start: 20130404, end: 20130719
  5. CENTRUM (MINERALS (UNSPECIFIED) (+) VITAMINS (UNSPECIFIED)) [Concomitant]
     Indication: VITAMIN SUPPLEMENTATION
     Dosage: 1 QD
     Route: 048
     Dates: start: 2000
  6. CALTRATE [Concomitant]
     Active Substance: CALCIUM CARBONATE
     Indication: MINERAL SUPPLEMENTATION
     Dosage: 1, BID
     Route: 048
     Dates: start: 2000
  7. FOSAMAX [Suspect]
     Active Substance: ALENDRONATE SODIUM
     Indication: OSTEOPENIA
     Dosage: 70 MG, QW
     Route: 048
     Dates: start: 200206

REACTIONS (27)
  - Depression [Unknown]
  - Anxiety [Unknown]
  - Allergic cough [Unknown]
  - Drug hypersensitivity [Unknown]
  - Osteonecrosis [Unknown]
  - Hypertension [Unknown]
  - Cataract operation [Unknown]
  - Fall [Unknown]
  - Osteoarthritis [Unknown]
  - Stress [Unknown]
  - Cataract operation [Unknown]
  - Intramedullary rod insertion [Unknown]
  - Intramedullary rod insertion [Unknown]
  - Back pain [Unknown]
  - Hyperlipidaemia [Unknown]
  - Oral disorder [Unknown]
  - Intervertebral disc protrusion [Unknown]
  - Femur fracture [Recovered/Resolved]
  - Joint effusion [Recovered/Resolved]
  - Osteoarthritis [Unknown]
  - Large intestine polyp [Unknown]
  - Arthroscopy [Unknown]
  - Vertigo [Unknown]
  - Femur fracture [Recovered/Resolved]
  - Meniscus injury [Unknown]
  - Vitamin D deficiency [Unknown]
  - Dental caries [Unknown]

NARRATIVE: CASE EVENT DATE: 200611
